FAERS Safety Report 14269365 (Version 1)
Quarter: 2017Q4

REPORT INFORMATION
  Report Type: Spontaneous
  Country: IT (occurrence: IT)
  Receive Date: 20171211
  Receipt Date: 20171211
  Transmission Date: 20180321
  Serious: Yes (Life-Threatening, Hospitalization, Other)
  Sender: FDA-Public Use
  Company Number: IT-BEXIMCO-2017BEX00028

PATIENT
  Age: 49 Year
  Sex: Female
  Weight: 90 kg

DRUGS (3)
  1. PIOGLITAZONE. [Suspect]
     Active Substance: PIOGLITAZONE
     Dosage: 1.6 G, UNK
     Route: 048
  2. INSULIN GLARGINE [Suspect]
     Active Substance: INSULIN GLARGINE
     Dosage: 40 IU, UNK
     Route: 065
  3. METFORMIN HYDROCHLORIDE. [Suspect]
     Active Substance: METFORMIN HYDROCHLORIDE
     Dosage: 95.2 G, UNK
     Route: 048

REACTIONS (7)
  - Intentional overdose [Recovered/Resolved]
  - Hypoglycaemia [Recovered/Resolved]
  - Lactic acidosis [Recovered/Resolved]
  - Suicide attempt [Recovered/Resolved]
  - Respiratory arrest [Recovered/Resolved]
  - Toxicity to various agents [Recovered/Resolved]
  - Shock [Recovered/Resolved]
